FAERS Safety Report 9302284 (Version 1)
Quarter: 2013Q2

REPORT INFORMATION
  Report Type: Spontaneous
  Country: JP (occurrence: JP)
  Receive Date: 20130522
  Receipt Date: 20130522
  Transmission Date: 20140414
  Serious: Yes (Other)
  Sender: FDA-Public Use
  Company Number: JP-ROCHE-1174201

PATIENT
  Age: 64 Year
  Sex: Male

DRUGS (11)
  1. CELLCEPT [Suspect]
     Indication: PROPHYLAXIS AGAINST TRANSPLANT REJECTION
     Route: 048
     Dates: start: 2009, end: 201001
  2. CELLCEPT [Suspect]
     Indication: PROPHYLAXIS AGAINST TRANSPLANT REJECTION
     Route: 048
     Dates: start: 201009, end: 201101
  3. CELLCEPT [Suspect]
     Indication: PROPHYLAXIS AGAINST TRANSPLANT REJECTION
     Route: 048
     Dates: start: 201101, end: 201102
  4. CELLCEPT [Suspect]
     Indication: PROPHYLAXIS AGAINST TRANSPLANT REJECTION
     Route: 048
     Dates: start: 201102, end: 201102
  5. CELLCEPT [Suspect]
     Indication: PROPHYLAXIS AGAINST TRANSPLANT REJECTION
  6. ALLOPURINOL [Suspect]
     Indication: HYPERURICAEMIA
     Route: 065
  7. MIZORIBINE [Concomitant]
     Indication: PROPHYLAXIS AGAINST TRANSPLANT REJECTION
     Dosage: THE POWDER IS DOSAGE UNCERTAIN.
     Route: 065
  8. CICLOSPORIN [Concomitant]
     Indication: PROPHYLAXIS AGAINST TRANSPLANT REJECTION
     Route: 048
  9. METHYLPREDNISOLONE [Concomitant]
     Indication: PROPHYLAXIS AGAINST TRANSPLANT REJECTION
     Route: 048
  10. BASILIXIMAB [Concomitant]
     Indication: PROPHYLAXIS AGAINST TRANSPLANT REJECTION
     Route: 042
  11. EVEROLIMUS [Concomitant]
     Indication: PROPHYLAXIS AGAINST TRANSPLANT REJECTION
     Route: 048
     Dates: start: 201101

REACTIONS (7)
  - Myelodysplastic syndrome [Unknown]
  - Cytomegalovirus test positive [Unknown]
  - Hyperuricaemia [Unknown]
  - Drug hypersensitivity [Unknown]
  - Diarrhoea [Recovered/Resolved]
  - Stomatitis [Recovering/Resolving]
  - Cellulitis [Recovering/Resolving]
